FAERS Safety Report 12259299 (Version 1)
Quarter: 2016Q2

REPORT INFORMATION
  Report Type: Spontaneous
  Country: US (occurrence: US)
  Receive Date: 20160412
  Receipt Date: 20160412
  Transmission Date: 20160815
  Serious: No
  Sender: FDA-Public Use
  Company Number: US-SA-2015SA076120

PATIENT
  Sex: Female

DRUGS (1)
  1. ALLEGRA [Suspect]
     Active Substance: FEXOFENADINE HYDROCHLORIDE
     Indication: HYPERSENSITIVITY
     Dosage: ALLEGRA ALLERGY 24 HOUR GELCAP OTC
     Route: 065

REACTIONS (3)
  - Pruritus generalised [Unknown]
  - Drug ineffective [Unknown]
  - Urticaria [Unknown]
